FAERS Safety Report 7354722-3 (Version None)
Quarter: 2011Q1

REPORT INFORMATION
  Report Type: 
  Country: None (occurrence: None)
  Receive Date: 20110316
  Receipt Date: 20110303
  Transmission Date: 20110831
  Serious: Yes (Hospitalization, Other)
  Sender: FDA-Public Use
  Company Number: US-ACTELION-A-NJ2009-24794

PATIENT

DRUGS (2)
  1. COUMADIN [Concomitant]
  2. TRACLEER [Suspect]
     Indication: PULMONARY ARTERIAL HYPERTENSION
     Route: 048
     Dates: start: 20090301

REACTIONS (5)
  - CARDIAC FAILURE CONGESTIVE [None]
  - DISORIENTATION [None]
  - ABDOMINAL PAIN UPPER [None]
  - FLUID RETENTION [None]
  - RENAL FAILURE [None]
